FAERS Safety Report 14243829 (Version 3)
Quarter: 2018Q2

REPORT INFORMATION
  Report Type: Report from Study
  Country: IL (occurrence: IL)
  Receive Date: 20171201
  Receipt Date: 20180530
  Transmission Date: 20180711
  Serious: Yes (Hospitalization)
  Sender: FDA-Public Use
  Company Number: PHHO2017IL013567

PATIENT
  Age: 52 Year
  Sex: Male
  Weight: 85 kg

DRUGS (1)
  1. IMATINIB [Suspect]
     Active Substance: IMATINIB
     Indication: CHRONIC GRAFT VERSUS HOST DISEASE
     Dosage: 200 MG, QD
     Route: 048
     Dates: start: 20170904

REACTIONS (1)
  - Dyspnoea [Recovered/Resolved]

NARRATIVE: CASE EVENT DATE: 20170925
